FAERS Safety Report 10605684 (Version 4)
Quarter: 2019Q2

REPORT INFORMATION
  Report Type: Report from Study
  Country: GR (occurrence: GR)
  Receive Date: 20141125
  Receipt Date: 20190516
  Transmission Date: 20190711
  Serious: Yes (Hospitalization)
  Sender: FDA-Public Use
  Company Number: GR-AMGEN-GRCCT2014090068

PATIENT
  Age: 81 Year
  Sex: Male

DRUGS (6)
  1. DENOSUMAB [Suspect]
     Active Substance: DENOSUMAB
     Indication: METASTASES TO BONE
     Dosage: 120 UNK, QMO
     Route: 042
     Dates: start: 201104
  2. SUPREFACT [Concomitant]
     Active Substance: BUSERELIN
     Dosage: 9.45 MG, Q3MO
     Dates: start: 201104
  3. ZOMETA [Suspect]
     Active Substance: ZOLEDRONIC ACID
     Indication: PRODUCT USED FOR UNKNOWN INDICATION
     Dosage: 4 MG, Q4WK
     Route: 042
     Dates: start: 201205, end: 201405
  4. ESTRACYT                           /00327002/ [Concomitant]
     Active Substance: ESTRAMUSTINE PHOSPHATE SODIUM
     Dosage: 280 MG, TID
     Dates: start: 201104
  5. DENOSUMAB [Suspect]
     Active Substance: DENOSUMAB
     Indication: PROSTATE CANCER
  6. CALCIORAL                          /00207901/ [Concomitant]
     Active Substance: CALCIUM PHOSPHATE\ERGOCALCIFEROL
     Dosage: 1000 UNK, QD

REACTIONS (1)
  - Osteonecrosis of jaw [Not Recovered/Not Resolved]

NARRATIVE: CASE EVENT DATE: 20141006
